FAERS Safety Report 21745429 (Version 1)
Quarter: 2022Q4

REPORT INFORMATION
  Report Type: Spontaneous
  Country: US (occurrence: US)
  Receive Date: 20221219
  Receipt Date: 20221219
  Transmission Date: 20230112
  Serious: Yes (Hospitalization, Other)
  Sender: FDA-Public Use
  Company Number: US-SUN PHARMACEUTICAL INDUSTRIES LTD-2022R1-368948

PATIENT
  Age: 60 Year
  Sex: Male

DRUGS (3)
  1. PHENYTOIN [Interacting]
     Active Substance: PHENYTOIN
     Indication: Seizure
     Dosage: UNK
     Route: 065
  2. ELIQUIS [Interacting]
     Active Substance: APIXABAN
     Indication: Deep vein thrombosis
     Dosage: 5 MILLIGRAM, BID
     Route: 048
  3. ELIQUIS [Interacting]
     Active Substance: APIXABAN
     Indication: Pulmonary embolism

REACTIONS (4)
  - Disease recurrence [Unknown]
  - Drug interaction [Unknown]
  - Drug ineffective [Unknown]
  - Treatment failure [Unknown]
